FAERS Safety Report 6207270-8 (Version None)
Quarter: 2009Q2

REPORT INFORMATION
  Report Type: 
  Country: None (occurrence: None)
  Receive Date: 20090522
  Receipt Date: 20090212
  Transmission Date: 20091009
  Serious: No
  Sender: FDA-Public Use
  Company Number: 8042979

PATIENT
  Age: 45 Year
  Sex: Female
  Weight: 61.2 kg

DRUGS (5)
  1. CIMZIA [Suspect]
     Indication: CROHN'S DISEASE
     Dosage: 400 MG SC
     Route: 058
     Dates: start: 20080901
  2. BONIVA [Concomitant]
  3. VITAMIN B-12 [Concomitant]
  4. CALCIUM [Concomitant]
  5. FOSAMAX [Concomitant]

REACTIONS (1)
  - BONE PAIN [None]
